FAERS Safety Report 21177324 (Version 1)
Quarter: 2022Q3

REPORT INFORMATION
  Report Type: Spontaneous
  Country: US (occurrence: US)
  Receive Date: 20220805
  Receipt Date: 20220805
  Transmission Date: 20221026
  Serious: No
  Sender: FDA-Public Use
  Company Number: US-ALLERGAN-2221884US

PATIENT
  Age: 77 Year
  Sex: Female

DRUGS (1)
  1. VUITY [Suspect]
     Active Substance: PILOCARPINE HYDROCHLORIDE
     Indication: Presbyopia
     Dosage: ONE DROP IN EACH EYE
     Route: 047
     Dates: start: 20220623, end: 20220626

REACTIONS (2)
  - Trismus [Recovered/Resolved]
  - Joint stiffness [Recovered/Resolved]

NARRATIVE: CASE EVENT DATE: 20220623
